FAERS Safety Report 18292825 (Version 2)
Quarter: 2020Q4

REPORT INFORMATION
  Report Type: Not Available
  Country: US (occurrence: US)
  Receive Date: 20200921
  Receipt Date: 20201009
  Transmission Date: 20210113
  Serious: Yes (Death)
  Sender: FDA-Public Use
  Company Number: US-NEUROCRINE BIOSCIENCES INC.-2020NBI03431

PATIENT
  Age: 72 Year
  Sex: Female

DRUGS (6)
  1. INGREZZA [Suspect]
     Active Substance: VALBENAZINE
     Route: 048
     Dates: start: 20200805
  2. INGREZZA [Suspect]
     Active Substance: VALBENAZINE
     Indication: TARDIVE DYSKINESIA
     Route: 048
     Dates: start: 20200729, end: 20200805
  3. BIOTENE NOS [Concomitant]
     Active Substance: CETYLPYRIDINIUM CHLORIDE OR SODIUM FLUORIDE OR SODIUM MONOFLUOROPHOSPHATE OR GLUCOSE OXIDASE\LACTOFERRIN\LACTOPEROXIDASE BOVINE\LYSOZYME
     Indication: DRY MOUTH
     Dosage: 2 SPRAY BY MOUTH EVERY 6 HOURS
     Dates: start: 20200303
  4. BISACODYL. [Concomitant]
     Active Substance: BISACODYL
     Indication: CONSTIPATION
     Dosage: EVERY 24 HR AS NEEDED AND THE EVENING OF DAY 4 WITHOUT BM AND IF MOM IS INEFFECTIVE
     Route: 054
     Dates: start: 20200303
  5. FLEET MINERAL OIL [Concomitant]
     Active Substance: MINERAL OIL
     Indication: CONSTIPATION
     Dosage: 1 APPLICATION EVERY 24 HOURS AS NEEDED, 1 APPLICATION AT NIGHT ON DAY 4 WITHOUT BM AND IF MOM AND DU
     Route: 054
     Dates: start: 20200303
  6. DANTROLENE. [Concomitant]
     Active Substance: DANTROLENE SODIUM
     Indication: JOINT CONTRACTURE
     Route: 048
     Dates: start: 20200303

REACTIONS (1)
  - Pneumonia aspiration [Fatal]

NARRATIVE: CASE EVENT DATE: 20200731
